FAERS Safety Report 12099062 (Version 2)
Quarter: 2016Q1

REPORT INFORMATION
  Report Type: Report from Study
  Country: NL (occurrence: NL)
  Receive Date: 20160222
  Receipt Date: 20160225
  Transmission Date: 20160526
  Serious: Yes (Hospitalization)
  Sender: FDA-Public Use
  Company Number: PHHY2016NL021444

PATIENT
  Age: 67 Year
  Sex: Male

DRUGS (1)
  1. SANDOSTATIN LAR DEPOT [Suspect]
     Active Substance: OCTREOTIDE ACETATE
     Indication: NEUROENDOCRINE TUMOUR
     Dosage: 20 MG, QMO (20 MG/2ML ONCE IN EVERY 04 WEEKS )
     Route: 030

REACTIONS (3)
  - Pyrexia [Unknown]
  - Chills [Recovering/Resolving]
  - Shock symptom [Unknown]

NARRATIVE: CASE EVENT DATE: 20160212
